FAERS Safety Report 12269393 (Version 8)
Quarter: 2016Q3

REPORT INFORMATION
  Report Type: Report from Study
  Country: CA (occurrence: CA)
  Receive Date: 20160414
  Receipt Date: 20160907
  Transmission Date: 20161109
  Serious: Yes (Other)
  Sender: FDA-Public Use
  Company Number: PHHY2016CA044505

PATIENT
  Age: 58 Year
  Sex: Female

DRUGS (6)
  1. MEKINIST [Suspect]
     Active Substance: TRAMETINIB DIMETHYL SULFOXIDE
     Indication: METASTATIC MALIGNANT MELANOMA
     Dosage: 2 MG, QD
     Route: 048
     Dates: start: 20160402
  2. TAFINLAR [Suspect]
     Active Substance: DABRAFENIB MESYLATE
     Indication: METASTATIC MALIGNANT MELANOMA
     Dosage: 300 MG, QD
     Route: 048
     Dates: start: 20160402
  3. MEKINIST [Suspect]
     Active Substance: TRAMETINIB DIMETHYL SULFOXIDE
     Dosage: 2 MG, QOD
     Route: 048
  4. TAFINLAR [Suspect]
     Active Substance: DABRAFENIB MESYLATE
     Dosage: 75 MG, BID
     Route: 048
  5. TAFINLAR [Suspect]
     Active Substance: DABRAFENIB MESYLATE
     Dosage: 150 MG, Q12H
     Route: 048
     Dates: start: 20160617, end: 20160831
  6. MEKINIST [Suspect]
     Active Substance: TRAMETINIB DIMETHYL SULFOXIDE
     Dosage: 2 MG, QD
     Route: 048
     Dates: start: 20160617, end: 20160831

REACTIONS (18)
  - Brain oedema [Unknown]
  - Seizure [Unknown]
  - Quality of life decreased [Unknown]
  - Pyrexia [Recovered/Resolved]
  - Disorientation [Unknown]
  - Dehydration [Unknown]
  - Chills [Recovered/Resolved]
  - Gait disturbance [Unknown]
  - Oxygen consumption decreased [Unknown]
  - Gingival disorder [Unknown]
  - Tachypnoea [Unknown]
  - Fatigue [Unknown]
  - Arthralgia [Unknown]
  - Blood glucose decreased [Recovering/Resolving]
  - Tremor [Unknown]
  - Headache [Unknown]
  - Depression [Unknown]
  - Pain in extremity [Unknown]

NARRATIVE: CASE EVENT DATE: 20160419
